FAERS Safety Report 8087160-9 (Version None)
Quarter: 2012Q1

REPORT INFORMATION
  Report Type: 
  Country: None (occurrence: None)
  Receive Date: 20120128
  Receipt Date: 20110512
  Transmission Date: 20120608
  Serious: No
  Sender: FDA-Public Use
  Company Number: US-ABBOTT-11P-163-0725648-00

PATIENT
  Sex: Female
  Weight: 82.628 kg

DRUGS (1)
  1. HUMIRA [Suspect]
     Indication: PSORIASIS
     Route: 058
     Dates: start: 20110201, end: 20110512

REACTIONS (4)
  - FATIGUE [None]
  - HEADACHE [None]
  - NAUSEA [None]
  - EMOTIONAL DISORDER [None]
